FAERS Safety Report 14195194 (Version 1)
Quarter: 2017Q4

REPORT INFORMATION
  Report Type: Spontaneous
  Country: JP (occurrence: JP)
  Receive Date: 20171116
  Receipt Date: 20171116
  Transmission Date: 20180321
  Serious: Yes (Other)
  Sender: FDA-Public Use
  Company Number: JP-PFIZER INC-2017484640

PATIENT

DRUGS (2)
  1. HALCION [Suspect]
     Active Substance: TRIAZOLAM
     Indication: INSOMNIA
     Dosage: 0.50MG, DAILY, BEFORE SLEEP
     Route: 048
     Dates: start: 20170417
  2. ROHYPNOL 1 [Suspect]
     Active Substance: FLUNITRAZEPAM
     Indication: INSOMNIA
     Dosage: 2 MG, DAILY, BEFORE SLEEP
     Route: 048
     Dates: start: 20170417

REACTIONS (4)
  - Memory impairment [Unknown]
  - Intentional overdose [Unknown]
  - Theft [Unknown]
  - Altered state of consciousness [Unknown]

NARRATIVE: CASE EVENT DATE: 2017
